FAERS Safety Report 5266321-8 (Version None)
Quarter: 2007Q1

REPORT INFORMATION
  Report Type: 
  Country: None (occurrence: None)
  Receive Date: 20070315
  Receipt Date: 20070309
  Transmission Date: 20070707
  Serious: Yes (Other)
  Sender: FDA-Public Use
  Company Number: HQWYE294209MAR07

PATIENT
  Age: 71 Year

DRUGS (2)
  1. ANCARON [Suspect]
     Indication: HYPERTROPHIC CARDIOMYOPATHY
     Route: 048
     Dates: start: 20031024, end: 20070227
  2. ANCARON [Suspect]
     Indication: ATRIAL FIBRILLATION

REACTIONS (2)
  - BRONCHIECTASIS [None]
  - INTERSTITIAL LUNG DISEASE [None]
